FAERS Safety Report 19369582 (Version 2)
Quarter: 2022Q2

REPORT INFORMATION
  Report Type: Spontaneous
  Country: US (occurrence: None)
  Receive Date: 20210602
  Receipt Date: 20220504
  Transmission Date: 20220721
  Serious: No
  Sender: FDA-Public Use
  Company Number: US-ROCHE-2787765

PATIENT
  Sex: Female

DRUGS (2)
  1. OCREVUS [Suspect]
     Active Substance: OCRELIZUMAB
     Indication: Product used for unknown indication
     Dosage: 300 MG/10 ML VIAL
     Route: 042
     Dates: start: 202009
  2. CEPHALEXIN [Concomitant]
     Active Substance: CEPHALEXIN
     Dosage: FOR 7 DAYS
     Route: 048

REACTIONS (2)
  - Erythema [Unknown]
  - Yellow skin [Unknown]

NARRATIVE: CASE EVENT DATE: 20210304
